FAERS Safety Report 19465529 (Version 1)
Quarter: 2021Q2

REPORT INFORMATION
  Report Type: Other
  Country: CN (occurrence: CN)
  Receive Date: 20210622
  Receipt Date: 20210622
  Transmission Date: 20210717
  Serious: Yes (Other)
  Sender: FDA-Public Use
  Company Number: CN-INVATECH-000100

PATIENT
  Age: 62 Year
  Sex: Male

DRUGS (2)
  1. VALPROIC ACID. [Suspect]
     Active Substance: VALPROIC ACID
     Indication: PRODUCT USED FOR UNKNOWN INDICATION
     Dosage: 1.2 MG/DAY
  2. IMIPENEM [Interacting]
     Active Substance: IMIPENEM
     Indication: PRODUCT USED FOR UNKNOWN INDICATION
     Dosage: 3.0 G/D
     Route: 041

REACTIONS (3)
  - Liver injury [Unknown]
  - Drug interaction [Unknown]
  - Drug level below therapeutic [Unknown]
